FAERS Safety Report 9455976 (Version 1)
Quarter: 2013Q3

REPORT INFORMATION
  Report Type: Spontaneous
  Country: US (occurrence: US)
  Receive Date: 20130813
  Receipt Date: 20130813
  Transmission Date: 20140515
  Serious: No
  Sender: FDA-Public Use
  Company Number: US-GALDERMA-US13001203

PATIENT
  Age: 55 Year
  Sex: Female

DRUGS (21)
  1. CLOBETASOL PROPIONATE [Suspect]
     Route: 061
     Dates: start: 201210, end: 201212
  2. CLOBEX (CLOBETASOL PROPIONATE) SHAMPOO, 0.05% [Suspect]
     Indication: PSORIASIS
     Route: 061
     Dates: start: 201303, end: 20130411
  3. CLOBEX (CLOBETASOL PROPIONATE) SHAMPOO, 0.05% [Suspect]
     Route: 061
     Dates: start: 201209
  4. CLOBEX (CLOBETASOL PROPIONATE) SPRAY, 0.05% [Suspect]
     Indication: PSORIASIS
     Route: 061
     Dates: start: 201212, end: 201212
  5. ALDACTAZIDE [Concomitant]
     Indication: FLUID RETENTION
     Route: 048
  6. CRESTOR [Concomitant]
     Indication: HYPERCHOLESTEROLAEMIA
     Route: 048
  7. PROZAC [Concomitant]
     Indication: DEPRESSION
     Route: 048
     Dates: start: 1998
  8. LEVOTHYROXINE [Concomitant]
     Indication: HYPOTHYROIDISM
     Route: 048
     Dates: start: 2006
  9. NAPROXEN [Concomitant]
     Indication: PAIN MANAGEMENT
     Route: 048
  10. KLONOPIN [Concomitant]
     Indication: ANXIETY
     Dosage: 2-3 TABLETS A DAY
     Route: 048
     Dates: start: 2010
  11. KLONOPIN [Concomitant]
     Indication: SLEEP DISORDER
  12. CALCIUM CHEWS [Concomitant]
     Route: 048
  13. ASPIRIN [Concomitant]
     Route: 048
  14. FLAXSEED OIL [Concomitant]
     Route: 048
  15. VITAMIN D [Concomitant]
     Route: 048
  16. DULCOLAX [Concomitant]
     Indication: CONSTIPATION
     Dosage: 3 TABS
     Route: 048
  17. PSYLLIUM HUSK [Concomitant]
     Indication: CONSTIPATION
     Dosage: 2 TBSP
     Route: 048
  18. FISH OIL [Concomitant]
     Dosage: 1
     Route: 048
  19. MOROCCAN ARGON OIL [Concomitant]
     Indication: HAIR TEXTURE ABNORMAL
     Route: 061
  20. PROTOPIC [Concomitant]
     Indication: PSORIASIS
     Route: 061
     Dates: start: 20121017
  21. HYDROXYZINE [Concomitant]
     Indication: ANTIALLERGIC THERAPY
     Route: 048
     Dates: start: 20121017

REACTIONS (4)
  - Alopecia [Not Recovered/Not Resolved]
  - Drug ineffective [Not Recovered/Not Resolved]
  - Rebound effect [Not Recovered/Not Resolved]
  - Incorrect drug administration duration [Recovered/Resolved]
